FAERS Safety Report 14718482 (Version 2)
Quarter: 2024Q2

REPORT INFORMATION
  Report Type: Spontaneous
  Country: DE (occurrence: DE)
  Receive Date: 20180404
  Receipt Date: 20240401
  Transmission Date: 20240716
  Serious: Yes (Hospitalization, Congenital Anomaly, Other)
  Sender: FDA-Public Use
  Company Number: DE-ARISTO PHARMA-VALP201711021

PATIENT
  Sex: Male
  Weight: 0.9 kg

DRUGS (3)
  1. VALPROIC ACID [Suspect]
     Active Substance: VALPROIC ACID
     Indication: Epilepsy
     Dosage: 1800 MG, QD
     Route: 064
  2. FOLIC ACID [Suspect]
     Active Substance: FOLIC ACID
     Indication: Prophylaxis
     Dosage: 0.4 MG, Q2D
     Route: 064
  3. VALPROATE [Suspect]
     Active Substance: VALPROIC ACID
     Indication: Product used for unknown indication
     Dosage: UNK
     Route: 064

REACTIONS (12)
  - Foetal anticonvulsant syndrome [Unknown]
  - Haemangioma [Unknown]
  - Inguinal hernia [Unknown]
  - Hypermobility syndrome [Unknown]
  - Low set ears [Unknown]
  - Premature baby [Unknown]
  - Ill-defined disorder [Unknown]
  - Congenital nose malformation [Unknown]
  - Congenital musculoskeletal disorder of skull [Unknown]
  - Skin malformation [Unknown]
  - Hypospadias [Unknown]
  - Foetal exposure during pregnancy [Unknown]
